FAERS Safety Report 24454966 (Version 2)
Quarter: 2024Q4

REPORT INFORMATION
  Report Type: Report from Study
  Country: US (occurrence: US)
  Receive Date: 20241017
  Receipt Date: 20241018
  Transmission Date: 20250115
  Serious: No
  Sender: ROCHE
  Company Number: US-ROCHE-3481924

PATIENT
  Age: 44 Year
  Sex: Female

DRUGS (11)
  1. RITUXAN [Suspect]
     Active Substance: RITUXIMAB
     Indication: Rheumatoid arthritis
     Dosage: THEN EVERY 6 MONTHS?DATE OF TREATMENT: 09/JUL/2018, 23/JUL/2018, 16/AUG/2023
     Route: 041
     Dates: start: 2015
  2. XANAX [Concomitant]
     Active Substance: ALPRAZOLAM
  3. WELLBUTRIN XL [Concomitant]
     Active Substance: BUPROPION HYDROCHLORIDE
  4. SOMA [Concomitant]
     Active Substance: CARISOPRODOL
  5. FLEXERIL [Concomitant]
     Active Substance: CYCLOBENZAPRINE HYDROCHLORIDE
  6. ESTRACE [Concomitant]
     Active Substance: ESTRADIOL
  7. MEDROL [Concomitant]
     Active Substance: METHYLPREDNISOLONE
  8. ROXICODONE [Concomitant]
     Active Substance: OXYCODONE HYDROCHLORIDE
  9. ZOLOFT [Concomitant]
     Active Substance: SERTRALINE HYDROCHLORIDE
  10. SILVADENE [Concomitant]
     Active Substance: SILVER SULFADIAZINE
  11. CLINORIL [Concomitant]
     Active Substance: SULINDAC

REACTIONS (1)
  - Fall [Unknown]
